FAERS Safety Report 23415100 (Version 1)
Quarter: 2024Q1

REPORT INFORMATION
  Report Type: Spontaneous
  Country: SE (occurrence: SE)
  Receive Date: 20240118
  Receipt Date: 20240118
  Transmission Date: 20240410
  Serious: Yes (Disabling)
  Sender: FDA-Public Use
  Company Number: None

PATIENT
  Age: 30 Year
  Sex: Female
  Weight: 74 kg

DRUGS (6)
  1. AMLODIPINE [Suspect]
     Active Substance: AMLODIPINE BESYLATE
     Indication: Hypertension
     Dosage: STRENGTH: 10MG
     Dates: start: 20230712, end: 20231109
  2. VENLAFAXINE [Concomitant]
     Active Substance: VENLAFAXINE HYDROCHLORIDE
     Dosage: STRENGTH: 75MG
  3. ALENDRONATE SODIUM\CALCIUM CARBONATE\CHOLECALCIFEROL [Concomitant]
     Active Substance: ALENDRONATE SODIUM\CALCIUM CARBONATE\CHOLECALCIFEROL
  4. METOPROLOL [Concomitant]
     Active Substance: METOPROLOL
     Dosage: STRENGTH: 50MG
  5. SPIRONOLACTONE [Concomitant]
     Active Substance: SPIRONOLACTONE
     Dosage: STRENGTH: 25MG
  6. LOSARTAN [Concomitant]
     Active Substance: LOSARTAN
     Dosage: STRENGTH: 50MG

REACTIONS (3)
  - Syncope [Not Recovered/Not Resolved]
  - Dizziness [Not Recovered/Not Resolved]
  - Blood pressure orthostatic [Not Recovered/Not Resolved]

NARRATIVE: CASE EVENT DATE: 20230806
